FAERS Safety Report 8068841-X (Version None)
Quarter: 2012Q1

REPORT INFORMATION
  Report Type: 
  Country: None (occurrence: None)
  Receive Date: 20120125
  Receipt Date: 20120117
  Transmission Date: 20120608
  Serious: Yes (Hospitalization)
  Sender: FDA-Public Use
  Company Number: US-BIOGENIDEC-2011BI049141

PATIENT
  Age: 49 Year
  Sex: Female

DRUGS (19)
  1. NEURONTIN [Concomitant]
  2. COLACE [Concomitant]
  3. PREGABALIN [Concomitant]
     Indication: PAIN
  4. ARMODAFINIL [Concomitant]
     Indication: URINARY TRACT INFECTION
  5. NEURONTIN [Concomitant]
  6. SENOKOT [Concomitant]
  7. TYSABRI [Suspect]
     Indication: MULTIPLE SCLEROSIS
     Route: 042
     Dates: start: 20071016, end: 20080925
  8. SUPPRESSIVE ANTIBIOTICS [Concomitant]
     Indication: URINARY TRACT INFECTION
  9. BACLOFEN [Concomitant]
     Indication: MUSCLE SPASMS
  10. AMPYRA [Concomitant]
  11. MACROBID [Concomitant]
     Indication: URINARY TRACT INFECTION
  12. TYSABRI [Suspect]
     Route: 042
     Dates: start: 20081028, end: 20110815
  13. VITAMIN D [Concomitant]
     Dosage: DOSE UNIT:1000
  14. PAMELOR [Concomitant]
     Indication: PAIN
  15. NEURONTIN [Concomitant]
     Indication: PAIN
  16. ULTRAM [Concomitant]
  17. ENEMEEZ [Concomitant]
  18. AMBIEN [Concomitant]
  19. PROVIGIL [Concomitant]

REACTIONS (2)
  - ANORECTAL DISORDER [None]
  - RECTOCELE [None]
